FAERS Safety Report 8542030-4 (Version None)
Quarter: 2012Q3

REPORT INFORMATION
  Report Type: 
  Country: None (occurrence: None)
  Receive Date: 20120726
  Receipt Date: 20111006
  Transmission Date: 20120928
  Serious: No
  Sender: FDA-Public Use
  Company Number: US-ASTRAZENECA-2011SE57922

PATIENT
  Age: 51 Year
  Sex: Female

DRUGS (5)
  1. RISPERDAL [Concomitant]
  2. SEROQUEL XR [Suspect]
     Indication: THINKING ABNORMAL
     Route: 048
  3. SEROQUEL XR [Suspect]
     Route: 048
  4. SEROQUEL XR [Suspect]
     Indication: SLEEP DISORDER
     Route: 048
  5. SEROQUEL XR [Suspect]
     Route: 048

REACTIONS (6)
  - MALAISE [None]
  - STRESS [None]
  - FATIGUE [None]
  - OFF LABEL USE [None]
  - INCORRECT DOSE ADMINISTERED [None]
  - FLASHBACK [None]
